FAERS Safety Report 23599011 (Version 1)
Quarter: 2024Q1

REPORT INFORMATION
  Report Type: Spontaneous
  Country: HU (occurrence: HU)
  Receive Date: 20240306
  Receipt Date: 20240306
  Transmission Date: 20240410
  Serious: Yes (Life-Threatening)
  Sender: FDA-Public Use
  Company Number: None

PATIENT
  Age: 77 Year
  Sex: Female
  Weight: 62 kg

DRUGS (8)
  1. OXALIPLATIN [Suspect]
     Active Substance: OXALIPLATIN
     Indication: Colorectal cancer
     Dosage: 40ML BOTTLE (200MG)
     Route: 042
     Dates: start: 20230915, end: 20231229
  2. CORMAGNESIN [Concomitant]
     Indication: Premedication
     Dosage: 0.2047 G/ML
     Route: 065
     Dates: start: 2023
  3. BEVACIZUMAB [Concomitant]
     Active Substance: BEVACIZUMAB
     Indication: Colorectal cancer
     Route: 065
     Dates: start: 20230915, end: 20231229
  4. FAMOTIDINE [Concomitant]
     Active Substance: FAMOTIDINE
     Indication: Premedication
     Dosage: 20 MG
     Route: 065
     Dates: start: 20230915, end: 20231229
  5. CHLOROPYRAMINE HYDROCHLORIDE [Concomitant]
     Active Substance: CHLOROPYRAMINE HYDROCHLORIDE
     Indication: Premedication
     Dosage: 1 AMPOULE
     Route: 065
     Dates: start: 20230915, end: 20231229
  6. SOLU-MEDROL [Concomitant]
     Active Substance: METHYLPREDNISOLONE SODIUM SUCCINATE
     Indication: Premedication
     Dosage: 40 MG
     Route: 065
     Dates: start: 20230915, end: 20231229
  7. MVASI [Concomitant]
     Active Substance: BEVACIZUMAB-AWWB
     Indication: Colorectal cancer
     Route: 065
     Dates: start: 2022
  8. ONDANSETRON HYDROCHLORIDE [Concomitant]
     Active Substance: ONDANSETRON HYDROCHLORIDE
     Indication: Premedication
     Route: 065
     Dates: start: 2023

REACTIONS (1)
  - Anaphylactic reaction [Recovered/Resolved]

NARRATIVE: CASE EVENT DATE: 20231229
